FAERS Safety Report 8484532-5 (Version None)
Quarter: 2012Q3

REPORT INFORMATION
  Report Type: 
  Country: None (occurrence: None)
  Receive Date: 20120703
  Receipt Date: 20120621
  Transmission Date: 20120928
  Serious: Yes (Death, Hospitalization, Other)
  Sender: FDA-Public Use
  Company Number: US-MYLANLABS-2008AL012231

PATIENT
  Age: 74 Year
  Sex: Male

DRUGS (22)
  1. CARVEDILOL [Concomitant]
  2. LASIX [Concomitant]
  3. DIGOXIN [Suspect]
     Indication: CARDIAC FAILURE CONGESTIVE
     Route: 048
     Dates: start: 20080125, end: 20080507
  4. CHANTIX [Concomitant]
  5. PROPOXYPHENE HCL [Concomitant]
  6. OXYCODONE HCL [Concomitant]
  7. COUMADIN [Concomitant]
  8. RAMIPRIL [Concomitant]
  9. SPIRONOLACTONE [Concomitant]
  10. CLINDAMYCIN [Concomitant]
  11. PREDNISONE [Concomitant]
  12. WARFARIN SODIUM [Concomitant]
  13. MULTI-VITAMIN [Concomitant]
  14. TERAZOSIN HCL [Concomitant]
  15. HYDROCODONE BITARTRATE + ACETAMINOPHEN [Concomitant]
  16. AZITHROMYCIN [Concomitant]
  17. FLOMAX [Concomitant]
  18. ASPIRIN [Concomitant]
  19. LIPITOR [Concomitant]
  20. BACTROBAN [Concomitant]
  21. ADVAIR DISKUS 100/50 [Concomitant]
  22. LUNESTA [Concomitant]

REACTIONS (19)
  - PAIN [None]
  - THROMBOCYTOPENIA [None]
  - BRADYCARDIA [None]
  - INJURY [None]
  - ECONOMIC PROBLEM [None]
  - DYSPNOEA [None]
  - ARTHRALGIA [None]
  - BRADYARRHYTHMIA [None]
  - CARDIAC PACEMAKER INSERTION [None]
  - NAUSEA [None]
  - HYPOXIA [None]
  - DECREASED APPETITE [None]
  - ATRIAL FIBRILLATION [None]
  - DEATH [None]
  - EMOTIONAL DISTRESS [None]
  - ILL-DEFINED DISORDER [None]
  - CARDIAC FAILURE CONGESTIVE [None]
  - BLOOD PRESSURE DECREASED [None]
  - TOXICITY TO VARIOUS AGENTS [None]
